FAERS Safety Report 6507043 (Version 2)
Quarter: 2013Q3

REPORT INFORMATION
  Report Type: Spontaneous
  Country: US (occurrence: US)
  Receive Date: 20071217
  Receipt Date: 20130711
  Transmission Date: 20140515
  Serious: No
  Sender: FDA-Public Use
  Company Number: US-ASTRAZENECA-2007UW19559

PATIENT
  Age: 76 Year
  Sex: Male
  Weight: 59.9 kg

DRUGS (12)
  1. CRESTOR [Suspect]
     Indication: BLOOD CHOLESTEROL INCREASED
     Route: 048
     Dates: start: 2008
  2. CRESTOR [Suspect]
     Indication: BLOOD CHOLESTEROL INCREASED
     Route: 048
  3. CRESTOR [Suspect]
     Indication: BLOOD CHOLESTEROL INCREASED
     Route: 048
  4. CRESTOR [Suspect]
     Indication: BLOOD CHOLESTEROL INCREASED
     Route: 048
  5. CRESTOR [Suspect]
     Indication: BLOOD CHOLESTEROL INCREASED
     Route: 048
     Dates: start: 200708, end: 2007
  6. CRESTOR [Suspect]
     Indication: BLOOD CHOLESTEROL INCREASED
     Route: 048
     Dates: end: 20130611
  7. CRESTOR [Suspect]
     Indication: BLOOD CHOLESTEROL INCREASED
     Dosage: HALF OF 10 MG
     Route: 048
  8. METOPROLOL [Suspect]
     Route: 048
  9. TOPROL XL [Suspect]
     Route: 048
  10. BABY ASA [Concomitant]
     Indication: MYOCARDIAL INFARCTION
  11. COENZYME Q10 [Concomitant]
  12. VITAMINS [Concomitant]

REACTIONS (9)
  - Pollakiuria [Unknown]
  - Chest discomfort [Unknown]
  - Dry eye [Recovered/Resolved]
  - Dry mouth [Recovered/Resolved]
  - Flushing [Recovered/Resolved]
  - Sleep disorder due to a general medical condition [Unknown]
  - Pruritus [Unknown]
  - Abdominal discomfort [Unknown]
  - Intentional drug misuse [Recovered/Resolved]
